FAERS Safety Report 9818125 (Version 1)
Quarter: 2013Q4

REPORT INFORMATION
  Report Type: Spontaneous
  Country: US (occurrence: None)
  Receive Date: 20131223
  Receipt Date: 20131223
  Transmission Date: 20140711
  Serious: No
  Sender: FDA-Public Use
  Company Number: 218556

PATIENT
  Age: 92 Year
  Sex: Male

DRUGS (1)
  1. PICATO GEL [Suspect]
     Indication: ACTINIC KERATOSIS
     Dates: start: 20120802, end: 20120803

REACTIONS (3)
  - Off label use [None]
  - Incorrect drug administration duration [None]
  - No adverse event [None]
